FAERS Safety Report 4678401-6 (Version None)
Quarter: 2005Q2

REPORT INFORMATION
  Report Type: 
  Country: None (occurrence: None)
  Receive Date: 20050527
  Receipt Date: 20050520
  Transmission Date: 20051028
  Serious: Yes (Hospitalization)
  Sender: FDA-Public Use
  Company Number: TPA2003A00605

PATIENT
  Age: 79 Year
  Sex: Male
  Weight: 83.9154 kg

DRUGS (14)
  1. PIOGLITAZONE HCL [Suspect]
     Indication: DIABETES MELLITUS NON-INSULIN-DEPENDENT
     Dosage: PER ORAL
     Route: 048
     Dates: start: 20030206, end: 20030528
  2. TORSEMIDE (TORASEMIDE) [Concomitant]
  3. METOLAZONE (METOLZONE) (2.5 MILLIGRAM) [Concomitant]
  4. TERAZOSIN HCL (TERAZOSIN) (2 MILLIGRAM) [Concomitant]
  5. LISINOPIRL (LISINOPIRL) (5 MILLIGRAM) [Concomitant]
  6. METOPROLOL (METOPROLOL ) (100 MILLIGRAM) [Concomitant]
  7. ISORDIL (ISORBIDE DINITRATE) (20 MILLIGRAM) [Concomitant]
  8. AMLODIPINE (AMLODIPINE) (5 MILLIGRAM) [Concomitant]
  9. INSULIN [Concomitant]
  10. ACARBOSE (ACARBOSE) [Concomitant]
  11. SIMVASTATIN (SIMVASTATIN) (8 MILLIGRAM) [Concomitant]
  12. FERROUS SULFATE TAB [Concomitant]
  13. ERYTHROPOETIN (ERYTHROPOEIETIN) (INJECTION) [Concomitant]
  14. BRIMONIDINE SOLN. (BRIMODINE) (0.15 PERCENT, EYE DROPS) [Concomitant]

REACTIONS (12)
  - ANAEMIA [None]
  - ATELECTASIS [None]
  - CARDIAC FAILURE CONGESTIVE [None]
  - CARDIOMEGALY [None]
  - DECREASED APPETITE [None]
  - HYPERGLYCAEMIA [None]
  - HYPOVOLAEMIA [None]
  - NAUSEA [None]
  - PITTING OEDEMA [None]
  - PLEURAL EFFUSION [None]
  - PULMONARY CONGESTION [None]
  - RENAL FAILURE ACUTE [None]
